FAERS Safety Report 23476526 (Version 1)
Quarter: 2024Q1

REPORT INFORMATION
  Report Type: Report from Study
  Country: US (occurrence: US)
  Receive Date: 20240204
  Receipt Date: 20240204
  Transmission Date: 20240410
  Serious: No
  Sender: FDA-Public Use
  Company Number: US-EXELIXIS-CABO-23063457

PATIENT
  Sex: Male

DRUGS (3)
  1. CABOMETYX [Suspect]
     Active Substance: CABOZANTINIB S-MALATE
     Indication: Renal cancer
     Dosage: 60 MG, QD
     Route: 048
     Dates: start: 20230425
  2. CABOMETYX [Suspect]
     Active Substance: CABOZANTINIB S-MALATE
     Dosage: 40 MG, QD
     Route: 048
  3. CABOMETYX [Suspect]
     Active Substance: CABOZANTINIB S-MALATE
     Dosage: 60 MG, QD
     Route: 048

REACTIONS (12)
  - Oropharyngeal pain [Unknown]
  - Proctalgia [Unknown]
  - Burning sensation [Not Recovered/Not Resolved]
  - Blister [Not Recovered/Not Resolved]
  - Glossitis [Not Recovered/Not Resolved]
  - Dry eye [Not Recovered/Not Resolved]
  - Malaise [Not Recovered/Not Resolved]
  - Fatigue [Unknown]
  - Taste disorder [Unknown]
  - Decreased appetite [Unknown]
  - Stomatitis [Not Recovered/Not Resolved]
  - Asthenia [Not Recovered/Not Resolved]
